FAERS Safety Report 12849643 (Version 1)
Quarter: 2016Q4

REPORT INFORMATION
  Report Type: Spontaneous
  Country: US (occurrence: US)
  Receive Date: 20161014
  Receipt Date: 20161014
  Transmission Date: 20170207
  Serious: No
  Sender: FDA-Public Use
  Company Number: US-ROCHE-1753454

PATIENT
  Sex: Female

DRUGS (14)
  1. BACLOFEN. [Concomitant]
     Active Substance: BACLOFEN
  2. METFORMIN [Concomitant]
     Active Substance: METFORMIN HYDROCHLORIDE
     Route: 065
  3. AZITHROMYCIN ANHYDROUS. [Concomitant]
     Active Substance: AZITHROMYCIN ANHYDROUS
  4. METOPROLOL. [Concomitant]
     Active Substance: METOPROLOL
  5. LOSARTAN. [Concomitant]
     Active Substance: LOSARTAN
  6. PAROXETINE. [Concomitant]
     Active Substance: PAROXETINE
  7. BENADRYL [Concomitant]
     Active Substance: DIPHENHYDRAMINE HYDROCHLORIDE
  8. SIMVASTATIN. [Concomitant]
     Active Substance: SIMVASTATIN
  9. CHLORDIAZEPOXIDE. [Concomitant]
     Active Substance: CHLORDIAZEPOXIDE
  10. ESBRIET [Suspect]
     Active Substance: PIRFENIDONE
     Indication: INTERSTITIAL LUNG DISEASE
     Route: 048
     Dates: start: 20150220
  11. LASIX [Concomitant]
     Active Substance: FUROSEMIDE
  12. CLOPIDOGREL [Concomitant]
     Active Substance: CLOPIDOGREL BISULFATE
  13. AMLODIPINE [Concomitant]
     Active Substance: AMLODIPINE BESYLATE
  14. TUSSI-12 [Concomitant]

REACTIONS (1)
  - Insomnia [Not Recovered/Not Resolved]
